FAERS Safety Report 9291608 (Version 3)
Quarter: 2013Q2

REPORT INFORMATION
  Report Type: Report from Study
  Country: AU (occurrence: AU)
  Receive Date: 20130515
  Receipt Date: 20130626
  Transmission Date: 20140414
  Serious: Yes (Hospitalization)
  Sender: FDA-Public Use
  Company Number: AU-GLAXOSMITHKLINE-B0891678A

PATIENT
  Age: 68 Year
  Sex: Male

DRUGS (13)
  1. PAZOPANIB [Suspect]
     Indication: RENAL CELL CARCINOMA
     Dates: start: 20120911
  2. SLOW K [Suspect]
     Indication: BLOOD POTASSIUM DECREASED
     Dosage: 1MG TWICE PER DAY
     Route: 048
     Dates: start: 20130109, end: 20130507
  3. FRUSEMIDE [Suspect]
     Indication: OEDEMA PERIPHERAL
     Dosage: 20MG PER DAY
     Route: 048
     Dates: start: 20120912, end: 20130507
  4. PREDNISOLONE [Concomitant]
     Indication: ADRENAL INSUFFICIENCY
     Route: 048
     Dates: start: 20120622
  5. FLUDROCORTISONE [Concomitant]
     Indication: ADRENAL INSUFFICIENCY
     Dosage: 100MG PER DAY
     Route: 048
     Dates: start: 20091201
  6. MOVICOL [Concomitant]
     Indication: CONSTIPATION PROPHYLAXIS
     Route: 048
     Dates: start: 20120501
  7. CLEXANE [Concomitant]
     Indication: THROMBOSIS
     Dosage: 60MG PER DAY
     Route: 058
     Dates: start: 20120801, end: 20130319
  8. AMLODIPINE [Concomitant]
     Indication: HYPERTENSION
     Dosage: 10MG PER DAY
     Route: 048
     Dates: start: 20120801
  9. OMEPRAZOLE [Concomitant]
     Indication: DYSPEPSIA
     Dosage: 20MG PER DAY
     Route: 048
     Dates: start: 20121002, end: 20121006
  10. OXYCONTIN [Concomitant]
     Indication: CHEST PAIN
     Dosage: 10MG TWICE PER DAY
     Route: 048
     Dates: start: 20121010
  11. GABAPENTIN [Concomitant]
     Indication: CHEST PAIN
     Dosage: 100MG THREE TIMES PER DAY
     Route: 048
     Dates: start: 20130101
  12. WARFARIN [Concomitant]
     Indication: DEEP VEIN THROMBOSIS
     Route: 048
     Dates: start: 20130320
  13. SPIRONOLACTONE [Concomitant]
     Indication: OEDEMA PERIPHERAL
     Route: 048
     Dates: start: 20130412, end: 20130430

REACTIONS (2)
  - Renal failure acute [Recovered/Resolved]
  - Hyperkalaemia [Recovered/Resolved]
